FAERS Safety Report 16003457 (Version 1)
Quarter: 2019Q1

REPORT INFORMATION
  Report Type: Spontaneous
  Country: US (occurrence: US)
  Receive Date: 20190226
  Receipt Date: 20190226
  Transmission Date: 20190418
  Serious: No
  Sender: FDA-Public Use
  Company Number: US-ELI_LILLY_AND_COMPANY-US201902010822

PATIENT
  Sex: Female
  Weight: 71.67 kg

DRUGS (5)
  1. PROZAC [Suspect]
     Active Substance: FLUOXETINE HYDROCHLORIDE
     Indication: PRODUCT USED FOR UNKNOWN INDICATION
     Dosage: 10 MG, UNKNOWN
     Route: 065
     Dates: start: 2013
  2. LECITHIN [Suspect]
     Active Substance: LECITHIN
     Indication: BLOOD CHOLESTEROL
     Dosage: 1200 MG, DAILY
     Route: 048
     Dates: start: 201802, end: 201802
  3. PROZAC [Suspect]
     Active Substance: FLUOXETINE HYDROCHLORIDE
     Dosage: 20 MG, UNKNOWN
     Route: 065
  4. ZIPRASIDONE HCL [Suspect]
     Active Substance: ZIPRASIDONE HYDROCHLORIDE
     Indication: BIPOLAR I DISORDER
     Dosage: 60 MG, BID
     Route: 048
     Dates: start: 2012
  5. LEVOTHYROXINE. [Concomitant]
     Active Substance: LEVOTHYROXINE
     Indication: HYPOTHYROIDISM

REACTIONS (4)
  - Abdominal discomfort [Recovered/Resolved]
  - Head discomfort [Recovered/Resolved]
  - Weight increased [Not Recovered/Not Resolved]
  - Blood cholesterol increased [Not Recovered/Not Resolved]

NARRATIVE: CASE EVENT DATE: 2017
